FAERS Safety Report 8533273-4 (Version None)
Quarter: 2012Q3

REPORT INFORMATION
  Report Type: 
  Country: None (occurrence: None)
  Receive Date: 20120724
  Receipt Date: 20120717
  Transmission Date: 20120928
  Serious: Yes (Other)
  Sender: FDA-Public Use
  Company Number: JP-AMGEN-JPNSP2012044942

PATIENT
  Age: 70 Year
  Sex: Female

DRUGS (6)
  1. ROMIPLOSTIM [Suspect]
     Dosage: 4 MUG/KG, UNK
  2. ROMIPLOSTIM [Suspect]
     Dosage: 3 MUG/KG, UNK
  3. ROMIPLOSTIM [Suspect]
     Dosage: 10 MUG/KG, QWK
  4. ROMIPLOSTIM [Suspect]
     Indication: IDIOPATHIC THROMBOCYTOPENIC PURPURA
     Dosage: 1 MUG/KG, QWK
     Dates: start: 20110401
  5. ROMIPLOSTIM [Suspect]
     Dosage: 2 MUG/KG, UNK
  6. ROMIPLOSTIM [Suspect]
     Dosage: 1 MUG/KG, 2 TIMES/WK

REACTIONS (3)
  - PETECHIAE [None]
  - THROMBOCYTOPENIA [None]
  - PURPURA [None]
